FAERS Safety Report 4771808-8 (Version None)
Quarter: 2005Q3

REPORT INFORMATION
  Report Type: 
  Country: None (occurrence: None)
  Receive Date: 20050916
  Receipt Date: 20050907
  Transmission Date: 20060218
  Serious: Yes (Death)
  Sender: FDA-Public Use
  Company Number: US-JNJFOC-20050901938

PATIENT
  Age: 28 Year
  Sex: Male

DRUGS (2)
  1. ACETAMINOPHEN/OXYCODONE [Suspect]
     Indication: DRUG USE FOR UNKNOWN INDICATION
     Route: 048
  2. CARISOPRODOL [Suspect]
     Indication: DRUG USE FOR UNKNOWN INDICATION
     Route: 048

REACTIONS (9)
  - BLOOD CREATININE INCREASED [None]
  - CARDIAC ARREST [None]
  - COMPLETED SUICIDE [None]
  - INTENTIONAL MISUSE [None]
  - LOSS OF CONSCIOUSNESS [None]
  - MULTIPLE DRUG OVERDOSE [None]
  - PUPIL FIXED [None]
  - RESPIRATORY ARREST [None]
  - SINUS TACHYCARDIA [None]
